FAERS Safety Report 10507260 (Version 1)
Quarter: 2014Q3

REPORT INFORMATION
  Report Type: Spontaneous
  Country: US (occurrence: None)
  Receive Date: 20140915
  Receipt Date: 20140915
  Transmission Date: 20150326
  Serious: Yes (Other)
  Sender: FDA-Public Use
  Company Number: 2013-US--001160

PATIENT
  Age: 46 Year
  Sex: Male
  Weight: 107 kg

DRUGS (7)
  1. LISINOPRIL ( LISINOPRIL) [Concomitant]
  2. VITAMIN D3 ( COLECALCIFEROL) [Concomitant]
  3. MULTIVITAMINS ( ASCORBIC ACID, ERGOCALCIFEROL, FOLIC ACID, NICOTINAMIDE, PANTHENOL, RETINOL, RIBOFLAVIN, THIAMINE HYDROCHLORIDE) [Concomitant]
  4. XYREM [Suspect]
     Active Substance: SODIUM OXYBATE
     Indication: NARCOLEPSY
     Route: 048
     Dates: start: 20130907, end: 2013
  5. RITALIN ( METHYLPHENIDATE HYDROCHLORIDE) [Concomitant]
  6. NAPROXEN ( NAPROXEN) UNKNOWN [Concomitant]
     Active Substance: NAPROXEN
  7. XYREM [Suspect]
     Active Substance: SODIUM OXYBATE
     Indication: SOMNOLENCE
     Route: 048
     Dates: start: 20130907, end: 2013

REACTIONS (2)
  - Suicidal ideation [None]
  - Drug ineffective [None]

NARRATIVE: CASE EVENT DATE: 2013
